FAERS Safety Report 4874097-9 (Version None)
Quarter: 2006Q1

REPORT INFORMATION
  Report Type: 
  Country: None (occurrence: None)
  Receive Date: 20060104
  Receipt Date: 20051221
  Transmission Date: 20060701
  Serious: Yes (Hospitalization)
  Sender: FDA-Public Use
  Company Number: 2005173411

PATIENT
  Age: 5 Year
  Sex: Male
  Weight: 17.2367 kg

DRUGS (2)
  1. ZANTAC [Suspect]
     Indication: HYPERCHLORHYDRIA
     Dosage: 1/2 TABLET ONCE, ORAL
     Route: 048
     Dates: start: 20051220, end: 20051220
  2. VITAMIN NOS (VITAMIN NOS) [Concomitant]

REACTIONS (2)
  - DEHYDRATION [None]
  - VOMITING [None]
